FAERS Safety Report 14310311 (Version 1)
Quarter: 2017Q4

REPORT INFORMATION
  Report Type: Spontaneous
  Country: US (occurrence: US)
  Receive Date: 20171220
  Receipt Date: 20171220
  Transmission Date: 20180321
  Serious: No
  Sender: FDA-Public Use
  Company Number: US-GLAXOSMITHKLINE-US2017191246

PATIENT
  Sex: Female

DRUGS (7)
  1. FLONASE ALLERGY RELIEF [Suspect]
     Active Substance: FLUTICASONE PROPIONATE
     Indication: RHINORRHOEA
     Dosage: UNK
     Route: 045
     Dates: start: 201711
  2. ADVAIR DISKUS [Suspect]
     Active Substance: FLUTICASONE PROPIONATE\SALMETEROL XINAFOATE
     Indication: ASTHMA
     Dosage: 1 PUFF(S), QD (100/50)
     Route: 055
     Dates: start: 2016
  3. ADVAIR DISKUS [Suspect]
     Active Substance: FLUTICASONE PROPIONATE\SALMETEROL XINAFOATE
     Dosage: UNK
  4. CALCIUM UNKNOWN [Concomitant]
  5. CLARITIN [Concomitant]
     Active Substance: LORATADINE
  6. FLONASE ALLERGY RELIEF [Suspect]
     Active Substance: FLUTICASONE PROPIONATE
     Indication: MULTIPLE ALLERGIES
  7. PEPCID [Concomitant]
     Active Substance: FAMOTIDINE

REACTIONS (9)
  - Multiple allergies [Unknown]
  - Intentional dose omission [Unknown]
  - Swelling [Unknown]
  - Inappropriate schedule of drug administration [Unknown]
  - Drug hypersensitivity [Unknown]
  - Intentional product misuse [Unknown]
  - Rhinorrhoea [Recovered/Resolved]
  - Abdominal discomfort [Unknown]
  - Respiratory tract congestion [Unknown]

NARRATIVE: CASE EVENT DATE: 2016
